FAERS Safety Report 14412428 (Version 1)
Quarter: 2018Q1

REPORT INFORMATION
  Report Type: Spontaneous
  Country: US (occurrence: US)
  Receive Date: 20180118
  Receipt Date: 20180118
  Transmission Date: 20180509
  Serious: Yes (Other)
  Sender: FDA-Public Use
  Company Number: None

PATIENT
  Sex: Female
  Weight: 73.35 kg

DRUGS (1)
  1. LEVALBUTEROL. [Suspect]
     Active Substance: LEVALBUTEROL
     Indication: ASTHMA
     Dosage: ?          QUANTITY:1 VIAL;?
     Route: 055
     Dates: start: 20180116, end: 20180116

REACTIONS (3)
  - Abdominal pain [None]
  - Dyspnoea [None]
  - Product substitution issue [None]

NARRATIVE: CASE EVENT DATE: 20180116
